FAERS Safety Report 5195370-3 (Version None)
Quarter: 2006Q4

REPORT INFORMATION
  Report Type: 
  Country: None (occurrence: None)
  Receive Date: 20061229
  Receipt Date: 20061220
  Transmission Date: 20070319
  Serious: Yes (Other)
  Sender: FDA-Public Use
  Company Number: FR-PFIZER INC-2006155300

PATIENT
  Age: 65 Year
  Sex: Male

DRUGS (4)
  1. TAHOR [Suspect]
  2. GLUCOPHAGE [Concomitant]
  3. PRINZIDE [Concomitant]
  4. HYDROCHLOROTHIAZIDE [Concomitant]

REACTIONS (4)
  - CALCINOSIS [None]
  - CHOLELITHIASIS [None]
  - CHOLESTASIS [None]
  - HYPERCALCAEMIA [None]
